FAERS Safety Report 19959321 (Version 1)
Quarter: 2021Q4

REPORT INFORMATION
  Report Type: Spontaneous
  Country: US (occurrence: US)
  Receive Date: 20211014
  Receipt Date: 20211014
  Transmission Date: 20220303
  Serious: Yes (Hospitalization)
  Sender: FDA-Public Use
  Company Number: None

PATIENT
  Sex: Female

DRUGS (16)
  1. NUCALA [Suspect]
     Active Substance: MEPOLIZUMAB
     Indication: Asthma
     Dosage: ?          OTHER FREQUENCY:EVERY 4 WEEKS;
     Route: 058
     Dates: start: 20180619
  2. BUDESONIDE [Concomitant]
     Active Substance: BUDESONIDE
  3. BUMETANIDE [Concomitant]
     Active Substance: BUMETANIDE
  4. CLINDAMYCIN [Concomitant]
     Active Substance: CLINDAMYCIN
  5. ELIQUIS [Concomitant]
     Active Substance: APIXABAN
  6. FLUTICASONE [Concomitant]
     Active Substance: FLUTICASONE
  7. HUMULIN NOS [Concomitant]
     Active Substance: INSULIN HUMAN
  8. HYDRALAZINE [Concomitant]
     Active Substance: HYDRALAZINE HYDROCHLORIDE
  9. IRON [Concomitant]
     Active Substance: IRON
  10. KETOCONAZOLE [Concomitant]
     Active Substance: KETOCONAZOLE
  11. MONTELUKAST [Concomitant]
     Active Substance: MONTELUKAST SODIUM
  12. POTASSIUM CHLORIDE [Concomitant]
     Active Substance: POTASSIUM CHLORIDE
  13. ROSUVASTATIN [Concomitant]
     Active Substance: ROSUVASTATIN
  14. SSD [Concomitant]
     Active Substance: SILVER SULFADIAZINE
  15. STIOLTO RESPIMAT [Concomitant]
     Active Substance: OLODATEROL HYDROCHLORIDE\TIOTROPIUM BROMIDE MONOHYDRATE
  16. TORSEMIDE [Concomitant]
     Active Substance: TORSEMIDE

REACTIONS (1)
  - Chronic obstructive pulmonary disease [None]
